FAERS Safety Report 19289655 (Version 3)
Quarter: 2021Q3

REPORT INFORMATION
  Report Type: Report from Study
  Country: US (occurrence: US)
  Receive Date: 20210522
  Receipt Date: 20210705
  Transmission Date: 20211014
  Serious: Yes (Hospitalization, Other)
  Sender: FDA-Public Use
  Company Number: NVSC2021US106823

PATIENT
  Age: 56 Year
  Sex: Male

DRUGS (3)
  1. LOSARTAN. [Suspect]
     Active Substance: LOSARTAN
     Indication: PRODUCT USED FOR UNKNOWN INDICATION
     Dosage: 100 MG
     Route: 048
  2. ENTRESTO [Suspect]
     Active Substance: SACUBITRIL\VALSARTAN
     Indication: PRODUCT USED FOR UNKNOWN INDICATION
     Dosage: 1 DF, BID
     Route: 048
     Dates: start: 20210426
  3. BRILINTA [Concomitant]
     Active Substance: TICAGRELOR
     Indication: PRODUCT USED FOR UNKNOWN INDICATION
     Dosage: UNK
     Route: 065

REACTIONS (9)
  - Contusion [Unknown]
  - Haematoma [Unknown]
  - Inappropriate schedule of product administration [Unknown]
  - Acute kidney injury [Unknown]
  - Rash [Unknown]
  - Gait disturbance [Unknown]
  - Hepatic enzyme increased [Recovering/Resolving]
  - Weight increased [Unknown]
  - Muscular weakness [Unknown]

NARRATIVE: CASE EVENT DATE: 202103
